FAERS Safety Report 5557774-6 (Version None)
Quarter: 2007Q4

REPORT INFORMATION
  Report Type: 
  Country: None (occurrence: None)
  Receive Date: 20071214
  Receipt Date: 20071211
  Transmission Date: 20080405
  Serious: Yes (Hospitalization)
  Sender: FDA-Public Use
  Company Number: AU-BAXTER-2007BH009695

PATIENT
  Age: 40 Year
  Sex: Female

DRUGS (6)
  1. OSMITROL INJECTION IN VIAFLEX PLASTIC CONTAINER [Suspect]
     Indication: COMPLEX REGIONAL PAIN SYNDROME
     Route: 042
     Dates: start: 20071123, end: 20071124
  2. KETAMINE HCL [Concomitant]
     Indication: COMPLEX REGIONAL PAIN SYNDROME
     Route: 042
     Dates: start: 20071120, end: 20071124
  3. MS CONTIN [Concomitant]
     Indication: COMPLEX REGIONAL PAIN SYNDROME
     Route: 048
     Dates: start: 20071120
  4. ACETAMINOPHEN [Concomitant]
     Indication: COMPLEX REGIONAL PAIN SYNDROME
     Route: 048
     Dates: start: 20071120, end: 20071101
  5. NORSPAN PATCH [Concomitant]
     Indication: COMPLEX REGIONAL PAIN SYNDROME
     Route: 061
     Dates: start: 20071120, end: 20071101
  6. LACTULOSE [Concomitant]
     Indication: DRUG USE FOR UNKNOWN INDICATION
     Route: 061
     Dates: start: 20071120, end: 20071101

REACTIONS (3)
  - ABDOMINAL PAIN [None]
  - FLUSHING [None]
  - KLEBSIELLA SEPSIS [None]
